FAERS Safety Report 9370224 (Version 1)
Quarter: 2013Q2

REPORT INFORMATION
  Report Type: Spontaneous
  Country: US (occurrence: None)
  Receive Date: 20130624
  Receipt Date: 20130624
  Transmission Date: 20140414
  Serious: Yes (Hospitalization)
  Sender: FDA-Public Use
  Company Number: UCM201306-000031

PATIENT
  Age: 56 Year
  Sex: Male

DRUGS (2)
  1. LAMOTRIGINE [Suspect]
  2. MONTELUKAST [Suspect]

REACTIONS (2)
  - Eosinophilia [None]
  - Allergic granulomatous angiitis [None]
